FAERS Safety Report 16221650 (Version 1)
Quarter: 2019Q2

REPORT INFORMATION
  Report Type: Spontaneous
  Country: CA (occurrence: CA)
  Receive Date: 20190422
  Receipt Date: 20190422
  Transmission Date: 20190711
  Serious: Yes (Hospitalization, Other)
  Sender: FDA-Public Use
  Company Number: CA-TEVA-2019-CA-1039336

PATIENT
  Age: 79 Year
  Sex: Male
  Weight: 65 kg

DRUGS (16)
  1. AZITHROMYCIN ANHYDROUS. [Suspect]
     Active Substance: AZITHROMYCIN ANHYDROUS
     Indication: COUGH
     Dosage: 500.0 UNITS ONCE
     Route: 048
  2. PANTOPRAZOLE [Concomitant]
     Active Substance: PANTOPRAZOLE
  3. SALBUTAMOL [Concomitant]
     Active Substance: ALBUTEROL
  4. SODIUM POLYSTYRENE [Concomitant]
     Active Substance: SODIUM POLYSTYRENE SULFONATE
  5. EPREX STERILE SOLUTION [Concomitant]
     Dosage: SOLUTION INTRAVENOUS
  6. ONE ALPHA [Concomitant]
     Active Substance: ALFACALCIDOL
  7. NEPAFENAC [Concomitant]
     Active Substance: NEPAFENAC
  8. AMLODIPINE [Concomitant]
     Active Substance: AMLODIPINE BESYLATE
  9. BISOPROLOL [Concomitant]
     Active Substance: BISOPROLOL
  10. MEGESTROL [Concomitant]
     Active Substance: MEGESTROL
  11. DOCUSATE [Concomitant]
     Active Substance: DOCUSATE
  12. CEFAZOLIN [Suspect]
     Active Substance: CEFAZOLIN
     Indication: PERITONITIS
     Dosage: 1500 MILLIGRAM DAILY;
     Route: 033
  13. ACETYLSALICYLIC ACID [Suspect]
     Active Substance: ASPIRIN
     Route: 065
  14. ERGOCALCIFEROL. [Concomitant]
     Active Substance: ERGOCALCIFEROL
  15. FLUTICASONE. [Concomitant]
     Active Substance: FLUTICASONE
  16. SEVELAMER [Concomitant]
     Active Substance: SEVELAMER

REACTIONS (7)
  - Product dose omission [Recovering/Resolving]
  - Pruritus [Recovering/Resolving]
  - Arthralgia [Recovering/Resolving]
  - Laryngeal discomfort [Recovering/Resolving]
  - Blister [Recovering/Resolving]
  - Lip swelling [Recovering/Resolving]
  - Oral disorder [Recovering/Resolving]
